FAERS Safety Report 20688820 (Version 1)
Quarter: 2022Q2

REPORT INFORMATION
  Report Type: Report from Study
  Country: US (occurrence: US)
  Receive Date: 20220408
  Receipt Date: 20220408
  Transmission Date: 20220721
  Serious: Yes (Other)
  Sender: FDA-Public Use
  Company Number: US-TEVA-2022-US-2024653

PATIENT
  Age: 48 Year
  Sex: Female

DRUGS (1)
  1. COPAXONE [Suspect]
     Active Substance: GLATIRAMER ACETATE
     Route: 065

REACTIONS (15)
  - Hemihypoaesthesia [Unknown]
  - Hemiparaesthesia [Unknown]
  - Injection site swelling [Unknown]
  - Injection site pruritus [Unknown]
  - Flushing [Unknown]
  - Dizziness [Unknown]
  - Tremor [Unknown]
  - Chest discomfort [Unknown]
  - Extrasystoles [Unknown]
  - Hypoaesthesia [Unknown]
  - Abdominal pain upper [Not Recovered/Not Resolved]
  - Back pain [Not Recovered/Not Resolved]
  - Hypertension [Recovering/Resolving]
  - Immediate post-injection reaction [Unknown]
  - Product after taste [Unknown]
